FAERS Safety Report 6509928-X (Version None)
Quarter: 2009Q4

REPORT INFORMATION
  Report Type: 
  Country: None (occurrence: None)
  Receive Date: 20091222
  Receipt Date: 20091212
  Transmission Date: 20100525
  Serious: Yes (Hospitalization)
  Sender: FDA-Public Use
  Company Number: PHHY2009BE55934

PATIENT
  Sex: Male

DRUGS (2)
  1. EXJADE [Suspect]
     Indication: MYELOFIBROSIS
     Dosage: UNK
  2. EXJADE [Suspect]
     Indication: IRON OVERLOAD

REACTIONS (3)
  - COLECTOMY [None]
  - DRUG TOXICITY [None]
  - INTESTINAL ULCER PERFORATION [None]
